FAERS Safety Report 12115441 (Version 2)
Quarter: 2016Q1

REPORT INFORMATION
  Report Type: Spontaneous
  Country: US (occurrence: US)
  Receive Date: 20160225
  Receipt Date: 20160227
  Transmission Date: 20160526
  Serious: Yes (Hospitalization)
  Sender: FDA-Public Use
  Company Number: US-BIOGEN-2016BI00193461

PATIENT
  Sex: Female

DRUGS (1)
  1. AVONEX [Suspect]
     Active Substance: INTERFERON BETA-1A
     Indication: MULTIPLE SCLEROSIS
     Route: 065
     Dates: start: 20070613

REACTIONS (7)
  - Hypoaesthesia [Unknown]
  - Pain [Not Recovered/Not Resolved]
  - Multiple sclerosis [Unknown]
  - Abasia [Not Recovered/Not Resolved]
  - Road traffic accident [Recovered/Resolved]
  - Paraesthesia [Unknown]
  - Stress [Unknown]
